FAERS Safety Report 21997869 (Version 2)
Quarter: 2023Q2

REPORT INFORMATION
  Report Type: Spontaneous
  Country: KR (occurrence: KR)
  Receive Date: 20230216
  Receipt Date: 20230414
  Transmission Date: 20230722
  Serious: Yes (Hospitalization, Other)
  Sender: FDA-Public Use
  Company Number: KR-CELLTRION INC.-2022KR018659

PATIENT

DRUGS (7)
  1. INFLIXIMAB [Suspect]
     Active Substance: INFLIXIMAB
     Indication: Crohn^s disease
     Dosage: 120 MG
     Route: 058
     Dates: start: 20220922
  2. IMURAN [Concomitant]
     Active Substance: AZATHIOPRINE
     Dosage: 3 TAB, QD
     Dates: start: 202206
  3. Procough [Concomitant]
     Dosage: 1 TAB, TID
     Dates: start: 20221222
  4. Boryung meiact [Concomitant]
     Dosage: 1 TAB, BID
     Dates: start: 20221227
  5. HULOFEN [Concomitant]
     Dosage: 1 TAB, TID
     Dates: start: 20221222
  6. COUGH SYRUP [Concomitant]
     Active Substance: DEXTROMETHORPHAN HYDROBROMIDE\GUAIFENESIN
     Dosage: 1 PACK, TID
     Dates: start: 20221222
  7. TYLENOL [Concomitant]
     Active Substance: ACETAMINOPHEN
     Dosage: 1000 MG, QD
     Dates: start: 20221103, end: 20221103

REACTIONS (7)
  - Faeces discoloured [Recovered/Resolved]
  - Small intestinal haemorrhage [Recovered/Resolved]
  - COVID-19 [Not Recovered/Not Resolved]
  - Injection site extravasation [Unknown]
  - Injection site pain [Recovered/Resolved]
  - Injection site swelling [Not Recovered/Not Resolved]
  - Wrong technique in product usage process [Unknown]

NARRATIVE: CASE EVENT DATE: 20221103
